FAERS Safety Report 22039121 (Version 1)
Quarter: 2023Q1

REPORT INFORMATION
  Report Type: Spontaneous
  Country: IN (occurrence: IN)
  Receive Date: 20230227
  Receipt Date: 20230227
  Transmission Date: 20230417
  Serious: Yes (Death, Life-Threatening, Hospitalization)
  Sender: FDA-Public Use
  Company Number: IN-drreddys-LIT/IND/23/0161621

PATIENT
  Age: 58 Year
  Sex: Male

DRUGS (9)
  1. REMDESIVIR [Suspect]
     Active Substance: REMDESIVIR
     Indication: COVID-19 pneumonia
     Dosage: ON THE FIRST DAY AS LOADING DOSE
     Route: 042
  2. REMDESIVIR [Suspect]
     Active Substance: REMDESIVIR
     Route: 042
  3. DEXAMETHASONE [Suspect]
     Active Substance: DEXAMETHASONE
     Indication: COVID-19 pneumonia
  4. CEFTRIAXONE [Suspect]
     Active Substance: CEFTRIAXONE
     Indication: COVID-19 pneumonia
  5. DOXYCYCLINE [Suspect]
     Active Substance: DOXYCYCLINE
     Indication: COVID-19 pneumonia
  6. IVERMECTIN [Suspect]
     Active Substance: IVERMECTIN
     Indication: COVID-19 pneumonia
  7. ZINC [Suspect]
     Active Substance: ZINC
     Indication: COVID-19 pneumonia
  8. ASCORBIC ACID [Suspect]
     Active Substance: ASCORBIC ACID
     Indication: COVID-19 pneumonia
  9. INSULIN NOS [Concomitant]
     Active Substance: INSULIN NOS
     Indication: Diabetes mellitus

REACTIONS (11)
  - Illness [Fatal]
  - Multiple organ dysfunction syndrome [Fatal]
  - Hepatic function abnormal [Unknown]
  - Leukocytosis [Unknown]
  - Pneumonitis [Unknown]
  - Pancreatitis necrotising [Unknown]
  - Ascites [Unknown]
  - Hepatomegaly [Unknown]
  - General physical health deterioration [Unknown]
  - Drug ineffective [Unknown]
  - Drug ineffective for unapproved indication [Unknown]
